FAERS Safety Report 7432074-8 (Version None)
Quarter: 2011Q2

REPORT INFORMATION
  Report Type: 
  Country: None (occurrence: None)
  Receive Date: 20110422
  Receipt Date: 20110419
  Transmission Date: 20111010
  Serious: Yes (Death)
  Sender: FDA-Public Use
  Company Number: FR-SANOFI-AVENTIS-2011SA023860

PATIENT
  Age: 25 Day
  Sex: Female
  Weight: 0.85 kg

DRUGS (7)
  1. CLAFORAN [Suspect]
     Indication: INFECTION
     Route: 042
     Dates: start: 20110331, end: 20110405
  2. MICAFUNGINE [Suspect]
     Indication: INFECTION
     Route: 042
     Dates: start: 20110401, end: 20110405
  3. CUROSURF [Concomitant]
     Route: 007
     Dates: start: 20110308, end: 20110308
  4. DOPAMINE [Suspect]
     Indication: INFECTION
     Dosage: VARIABLE DOSE TO 5 TO 9 ?G/KG/MIN
     Route: 042
     Dates: start: 20110331, end: 20110402
  5. SUFENTANIL [Suspect]
     Route: 042
     Dates: end: 20110406
  6. HYDROCORTISONE [Suspect]
     Indication: INFECTION
     Route: 042
     Dates: start: 20110331, end: 20110405
  7. IBUPROFEN [Concomitant]
     Route: 065
     Dates: start: 20110301, end: 20110301

REACTIONS (1)
  - HYPERTROPHIC CARDIOMYOPATHY [None]
